FAERS Safety Report 8911951 (Version 2)
Quarter: 2012Q4

REPORT INFORMATION
  Report Type: 
  Country: US (occurrence: US)
  Receive Date: 20121115
  Receipt Date: 20121120
  Transmission Date: 20130627
  Serious: Yes (Hospitalization, Other)
  Sender: FDA-Public Use
  Company Number: US-TEVA-369564USA

PATIENT
  Age: 61 None
  Sex: Female

DRUGS (2)
  1. COPAXONE [Suspect]
     Indication: MULTIPLE SCLEROSIS
     Route: 058
     Dates: start: 20010101
  2. PREDNISONE [Concomitant]

REACTIONS (4)
  - Multiple sclerosis relapse [Unknown]
  - Balance disorder [Recovering/Resolving]
  - Functional gastrointestinal disorder [Unknown]
  - Constipation [Unknown]
